FAERS Safety Report 5914696-6 (Version None)
Quarter: 2008Q4

REPORT INFORMATION
  Report Type: 
  Country: None (occurrence: None)
  Receive Date: 20081010
  Receipt Date: 20080930
  Transmission Date: 20090506
  Serious: Yes (Hospitalization)
  Sender: FDA-Public Use
  Company Number: US-JNJFOC-20081000681

PATIENT
  Age: 74 Year
  Sex: Female
  Weight: 52.16 kg

DRUGS (11)
  1. FENTANYL TRANSDERMAL SYSTEM [Suspect]
     Route: 062
  2. FENTANYL TRANSDERMAL SYSTEM [Suspect]
     Indication: TRIGEMINAL NEURALGIA
     Route: 062
  3. DURAGESIC-100 [Suspect]
     Indication: TRIGEMINAL NEURALGIA
     Route: 062
  4. FENTANYL TRANSDERMAL SYSTEM [Suspect]
     Indication: TRIGEMINAL NEURALGIA
     Route: 062
  5. NEURONTIN [Concomitant]
     Indication: TRIGEMINAL NEURALGIA
     Route: 048
  6. SYNTHROID [Concomitant]
     Indication: HYPOTHYROIDISM
     Route: 048
  7. ASPIRIN [Concomitant]
     Indication: CARDIAC DISORDER
     Route: 048
  8. ISOSORBIDE [Concomitant]
     Indication: CARDIAC DISORDER
     Route: 048
  9. VERAPAMIL [Concomitant]
     Indication: HYPERTENSION
     Route: 048
  10. ACTONEL [Concomitant]
     Indication: OSTEOPOROSIS
     Route: 048
  11. PRESERVISION [Concomitant]
     Indication: MACULAR DEGENERATION
     Route: 048

REACTIONS (3)
  - DRUG INEFFECTIVE [None]
  - NEOPLASM MALIGNANT [None]
  - PAIN IN EXTREMITY [None]
